FAERS Safety Report 5322167-3 (Version None)
Quarter: 2007Q2

REPORT INFORMATION
  Report Type: 
  Country: None (occurrence: None)
  Receive Date: 20070220
  Receipt Date: 20070103
  Transmission Date: 20071010
  Serious: No
  Sender: FDA-Public Use
  Company Number: TPA2007A00073

PATIENT
  Age: 54 Year
  Sex: Female
  Weight: 68.0396 kg

DRUGS (2)
  1. ROZEREM [Suspect]
     Indication: INSOMNIA
     Dosage: 8 MG, ONCE, PER ORAL
     Route: 048
     Dates: start: 20060401, end: 20060401
  2. AMBIEN [Suspect]
     Indication: INSOMNIA
     Dosage: 20 MG, HS, PER ORAL
     Route: 048

REACTIONS (3)
  - DIARRHOEA [None]
  - INITIAL INSOMNIA [None]
  - POOR QUALITY SLEEP [None]
